FAERS Safety Report 9220108 (Version 2)
Quarter: 2013Q3

REPORT INFORMATION
  Report Type: Spontaneous
  Country: US (occurrence: US)
  Receive Date: 20130409
  Receipt Date: 20130812
  Transmission Date: 20140515
  Serious: Yes (Other)
  Sender: FDA-Public Use
  Company Number: US-PFIZER INC-2013107901

PATIENT
  Age: 82 Year
  Sex: Female
  Weight: 104 kg

DRUGS (1)
  1. CELEBREX [Suspect]
     Indication: ARTHRITIS
     Dosage: 200 MG, 1X/DAY
     Route: 048

REACTIONS (8)
  - Diabetes mellitus [Unknown]
  - Neuropathy peripheral [Unknown]
  - Blood urea increased [Unknown]
  - Gait disturbance [Unknown]
  - Weight increased [Unknown]
  - Hypoaesthesia [Unknown]
  - Fatigue [Unknown]
  - Somnolence [Unknown]
